FAERS Safety Report 9345842 (Version 1)
Quarter: 2013Q2

REPORT INFORMATION
  Report Type: Spontaneous
  Country: GB (occurrence: GB)
  Receive Date: 20130613
  Receipt Date: 20130613
  Transmission Date: 20140414
  Serious: Yes (Other)
  Sender: FDA-Public Use
  Company Number: GB-ROCHE-1236055

PATIENT
  Sex: Female

DRUGS (3)
  1. XELODA [Suspect]
     Indication: BREAST CANCER METASTATIC
     Route: 065
     Dates: start: 2013
  2. TYVERB [Suspect]
     Indication: BREAST CANCER METASTATIC
     Route: 048
     Dates: start: 2013
  3. HERCEPTIN [Concomitant]
     Route: 065

REACTIONS (4)
  - Condition aggravated [Unknown]
  - Diarrhoea [Recovered/Resolved]
  - Ejection fraction decreased [Unknown]
  - Renal failure [Recovered/Resolved]
